FAERS Safety Report 7814018-X (Version None)
Quarter: 2011Q4

REPORT INFORMATION
  Report Type: 
  Country: None (occurrence: None)
  Receive Date: 20111014
  Receipt Date: 20110930
  Transmission Date: 20120403
  Serious: Yes (Hospitalization)
  Sender: FDA-Public Use
  Company Number: US-BAYER-2011-011233

PATIENT
  Age: 51 Year
  Sex: Female
  Weight: 43.991 kg

DRUGS (11)
  1. TYLENOL-500 [Concomitant]
  2. IBUPROFEN [Concomitant]
  3. YAZ [Suspect]
     Indication: ACNE
     Dosage: UNK
     Dates: start: 20090513, end: 20090630
  4. HYDROCODONE BITARTRATE [Concomitant]
     Dosage: 7.5 MG, UNK
  5. APAP TAB [Concomitant]
     Dosage: 500 MG, UNK
  6. IRON [Concomitant]
  7. WELLBUTRIN [Concomitant]
     Dosage: 300 MG, UNK
     Dates: start: 20000101
  8. HALCION [Concomitant]
     Dosage: 0.25 MG, UNK
     Dates: start: 20070101
  9. STEROID DOSEPAK [Concomitant]
     Dosage: UNK
     Dates: start: 20090601
  10. MULTI-VITAMIN [Concomitant]
  11. METHYLPREDNISOLONE [Concomitant]
     Dosage: 4 MG, UNK
     Dates: start: 20090620

REACTIONS (3)
  - PULMONARY EMBOLISM [None]
  - DEEP VEIN THROMBOSIS [None]
  - PAIN [None]
